FAERS Safety Report 6539558-5 (Version None)
Quarter: 2010Q1

REPORT INFORMATION
  Report Type: 
  Country: None (occurrence: None)
  Receive Date: 20100115
  Receipt Date: 20100107
  Transmission Date: 20100710
  Serious: Yes (Hospitalization)
  Sender: FDA-Public Use
  Company Number: B0625334A

PATIENT
  Age: 17 Year
  Sex: Male

DRUGS (2)
  1. TRIMETHOPRIM + SULFAMETHOXAZOLE [Suspect]
     Indication: OVERDOSE
     Dosage: 1920MG CUMULATIVE DOSE
     Route: 048
  2. PROPAFENONE [Suspect]
     Indication: OVERDOSE
     Dosage: 6000MG CUMULATIVE DOSE
     Route: 048

REACTIONS (12)
  - ACIDOSIS [None]
  - BUNDLE BRANCH BLOCK RIGHT [None]
  - CARDIAC ARREST [None]
  - CYANOSIS [None]
  - DRUG TOXICITY [None]
  - ELECTROCARDIOGRAM QRS COMPLEX PROLONGED [None]
  - LOSS OF CONSCIOUSNESS [None]
  - NAUSEA [None]
  - OVERDOSE [None]
  - SINUS BRADYCARDIA [None]
  - SUICIDE ATTEMPT [None]
  - VOMITING [None]
